FAERS Safety Report 13921708 (Version 1)
Quarter: 2017Q3

REPORT INFORMATION
  Report Type: Spontaneous
  Country: US (occurrence: US)
  Receive Date: 20170830
  Receipt Date: 20170830
  Transmission Date: 20171127
  Serious: Yes (Other)
  Sender: FDA-Public Use
  Company Number: US-ALSI-201700276

PATIENT
  Age: 23 Year
  Sex: Female

DRUGS (2)
  1. VITAMIN B12 [Concomitant]
     Active Substance: CYANOCOBALAMIN
  2. NITROUS OXIDE. [Suspect]
     Active Substance: NITROUS OXIDE
     Indication: DRUG ABUSE
     Route: 055

REACTIONS (5)
  - Depression [Recovered/Resolved]
  - Drug use disorder [Recovered/Resolved]
  - Disturbance in attention [Recovered/Resolved]
  - Ataxia [Recovered/Resolved]
  - Neuropathy peripheral [Recovered/Resolved]
